FAERS Safety Report 10265452 (Version 5)
Quarter: 2014Q3

REPORT INFORMATION
  Report Type: Spontaneous
  Country: US (occurrence: None)
  Receive Date: 20140624
  Receipt Date: 20140923
  Transmission Date: 20150326
  Serious: Yes (Hospitalization)
  Sender: FDA-Public Use
  Company Number: AEGR000534

PATIENT
  Age: 57 Year
  Sex: Female
  Weight: 90.2 kg

DRUGS (25)
  1. DIAZEPAM. [Concomitant]
     Active Substance: DIAZEPAM
  2. ASPIRIN (ACETYLSALICYLIC ACID) [Concomitant]
     Active Substance: ASPIRIN
  3. NITROGLYCERIN (GLYCERYL TRINITRATE) [Concomitant]
  4. FENOFIBRATE. [Concomitant]
     Active Substance: FENOFIBRATE
  5. COREG [Concomitant]
     Active Substance: CARVEDILOL
  6. ATORVASTATIN [Concomitant]
     Active Substance: ATORVASTATIN
  7. LOVAZA (OMEGA-3-ACID ETHYL ESTER) [Concomitant]
  8. LIDODERM [Concomitant]
     Active Substance: LIDOCAINE
  9. FLUOXETINE [Concomitant]
     Active Substance: FLUOXETINE\FLUOXETINE HYDROCHLORIDE
  10. ALDACTONE [Concomitant]
     Active Substance: SPIRONOLACTONE
  11. WELLBUTRIN [Concomitant]
     Active Substance: BUPROPION HYDROCHLORIDE
  12. MULTIVITAMIN (VITAMINS NOS) [Concomitant]
     Active Substance: VITAMINS
  13. DIOVAN [Concomitant]
     Active Substance: VALSARTAN
  14. NORCO (HYDROCODONE BITARTRATE, PARACETAMOL) [Concomitant]
  15. VITAMIN E [Concomitant]
     Active Substance: .ALPHA.-TOCOPHEROL
  16. JUXTAPID [Suspect]
     Active Substance: LOMITAPIDE MESYLATE
     Indication: TYPE IIA HYPERLIPIDAEMIA
     Route: 048
     Dates: start: 20140518, end: 20140529
  17. FUROSEMIDE. [Concomitant]
     Active Substance: FUROSEMIDE
  18. ACTOS [Concomitant]
     Active Substance: PIOGLITAZONE HYDROCHLORIDE
  19. VITAMIN D (COLECALCIFEROL) [Concomitant]
  20. DILTIAZEM HYDROCHLORIDE EXTENDED RELEASE [Suspect]
     Active Substance: DILTIAZEM HYDROCHLORIDE
     Indication: PRODUCT USED FOR UNKNOWN INDICATION
  21. BRILINTA [Concomitant]
     Active Substance: TICAGRELOR
  22. RANEXA (RANOLAZINE) [Concomitant]
  23. FLUCONAZOLE. [Concomitant]
     Active Substance: FLUCONAZOLE
  24. LIPITOR [Concomitant]
     Active Substance: ATORVASTATIN CALCIUM
  25. OMEGA 3 6 9 (INEGA 9 FATTY ACIDS, OMEGA-3 FATTY ACIDS, OMEGA-6 FATTY ACIDS) [Concomitant]

REACTIONS (18)
  - Myocardial infarction [None]
  - Headache [None]
  - Dizziness postural [None]
  - Renal failure [None]
  - Coronary artery restenosis [None]
  - Incision site hypoaesthesia [None]
  - Cough [None]
  - Depression [None]
  - Nausea [None]
  - Vomiting [None]
  - Abdominal tenderness [None]
  - Diarrhoea [None]
  - Dialysis [None]
  - Cardiac disorder [None]
  - Coronary artery disease [None]
  - Muscular weakness [None]
  - Labelled drug-drug interaction medication error [None]
  - Dyspnoea [None]

NARRATIVE: CASE EVENT DATE: 20140518
